FAERS Safety Report 23048729 (Version 1)
Quarter: 2023Q4

REPORT INFORMATION
  Report Type: Report from Study
  Country: JP (occurrence: JP)
  Receive Date: 20231010
  Receipt Date: 20231010
  Transmission Date: 20240110
  Serious: Yes (Other)
  Sender: FDA-Public Use
  Company Number: JP-TEVA-2023-JP-2933655

PATIENT
  Age: 59 Year
  Sex: Female

DRUGS (11)
  1. FLUVOXAMINE [Suspect]
     Active Substance: FLUVOXAMINE
     Indication: Depression
     Dosage: 1T, 75 MG
     Route: 065
  2. FLUVOXAMINE [Suspect]
     Active Substance: FLUVOXAMINE
     Dosage: 2T, 25 MG
     Route: 065
  3. MIANSERIN [Suspect]
     Active Substance: MIANSERIN
     Indication: Depression
     Dosage: 1T, 30 MG
     Route: 065
  4. LEVOMEPROMAZINE [Suspect]
     Active Substance: LEVOMEPROMAZINE
     Indication: Depression
     Dosage: 1T, 5 MG
     Route: 065
  5. ETIZOLAM [Suspect]
     Active Substance: ETIZOLAM
     Indication: Depression
     Dosage: 1T, 0.5 MG
     Route: 065
  6. CHLORPROMAZINE HYDROCHLORIDE\PHENOBARBITAL\PROMETHAZINE [Suspect]
     Active Substance: CHLORPROMAZINE HYDROCHLORIDE\PHENOBARBITAL\PROMETHAZINE
     Indication: Depression
     Dosage: 2T
     Route: 065
  7. FLURAZEPAM [Concomitant]
     Active Substance: FLURAZEPAM HYDROCHLORIDE
     Indication: Product used for unknown indication
     Dosage: 2C, 15 MG
     Route: 065
  8. PENTOBARBITAL [Concomitant]
     Active Substance: PENTOBARBITAL
     Indication: Product used for unknown indication
     Dosage: 1T, 50 MG
     Route: 065
  9. TEPRENONE [Concomitant]
     Active Substance: TEPRENONE
     Indication: Product used for unknown indication
     Dosage: 2C, 50 MG
     Route: 065
  10. HYDROXYZINE HYDROCHLORIDE [Concomitant]
     Active Substance: HYDROXYZINE HYDROCHLORIDE
     Indication: Product used for unknown indication
     Dosage: 1C, 25 MG
     Route: 065
  11. BENFOTIAMINE [Concomitant]
     Active Substance: BENFOTIAMINE
     Indication: Product used for unknown indication
     Dosage: 3C, 25 MG
     Route: 065

REACTIONS (1)
  - Malocclusion [Unknown]
